FAERS Safety Report 19310633 (Version 1)
Quarter: 2021Q2

REPORT INFORMATION
  Report Type: Other
  Country: TR (occurrence: TR)
  Receive Date: 20210526
  Receipt Date: 20210526
  Transmission Date: 20210717
  Serious: Yes (Death, Life-Threatening, Hospitalization)
  Sender: FDA-Public Use
  Company Number: TR-NOSTRUM LABORATORIES, INC.-2112002

PATIENT
  Age: 16 Year
  Sex: Female

DRUGS (2)
  1. METFORMIN HYDROCHLORIDE EXTENDED?RELEASE [Suspect]
     Active Substance: METFORMIN HYDROCHLORIDE
     Indication: INTENTIONAL OVERDOSE
     Route: 048
  2. NATEGLINIDE. [Concomitant]
     Active Substance: NATEGLINIDE
     Route: 048

REACTIONS (7)
  - Cardiac arrest [Fatal]
  - Coma [Fatal]
  - Acute kidney injury [Fatal]
  - Hypotension [Fatal]
  - Multiple organ dysfunction syndrome [Fatal]
  - Lactic acidosis [Fatal]
  - Intentional overdose [Fatal]
